FAERS Safety Report 8580930-X (Version None)
Quarter: 2012Q3

REPORT INFORMATION
  Report Type: 
  Country: None (occurrence: None)
  Receive Date: 20120809
  Receipt Date: 20120801
  Transmission Date: 20120928
  Serious: Yes (Other)
  Sender: FDA-Public Use
  Company Number: FR-SANOFI-AVENTIS-2012SA054842

PATIENT
  Age: 23 Year
  Sex: Male

DRUGS (3)
  1. NANDROLONE DECANOATE [Suspect]
     Indication: MUSCLE MASS
     Route: 030
     Dates: start: 20120401, end: 20120501
  2. CLOMID [Suspect]
     Route: 048
     Dates: start: 20120501, end: 20120501
  3. SUSTANON 100 [Suspect]
     Indication: MUSCLE MASS
     Dosage: DOSE:1 UNIT(S)
     Route: 030
     Dates: start: 20120401, end: 20120501

REACTIONS (2)
  - ERECTILE DYSFUNCTION [None]
  - ACUTE PSYCHOSIS [None]
